FAERS Safety Report 4981377-5 (Version None)
Quarter: 2006Q2

REPORT INFORMATION
  Report Type: 
  Country: None (occurrence: None)
  Receive Date: 20060424
  Receipt Date: 20050919
  Transmission Date: 20061013
  Serious: Yes (Death, Life-Threatening, Other)
  Sender: FDA-Public Use
  Company Number: US-MERCK-0509USA03005

PATIENT
  Sex: Female

DRUGS (3)
  1. VIOXX [Suspect]
     Route: 048
  2. CELEBREX [Suspect]
     Route: 065
  3. BEXTRA [Suspect]
     Route: 065

REACTIONS (6)
  - ANXIETY [None]
  - CARDIOMYOPATHY [None]
  - DEATH [None]
  - ECONOMIC PROBLEM [None]
  - INJURY [None]
  - PAIN [None]
